FAERS Safety Report 4989096-6 (Version None)
Quarter: 2006Q1

REPORT INFORMATION
  Report Type: 
  Country: None (occurrence: None)
  Receive Date: 20060314
  Receipt Date: 20050907
  Transmission Date: 20060701
  Serious: Yes (Other)
  Sender: FDA-Public Use
  Company Number: 200513591BCC

PATIENT
  Age: 77 Year
  Sex: Male
  Weight: 81.6475 kg

DRUGS (2)
  1. ALEVE (CAPLET) [Suspect]
     Indication: BACK PAIN
     Dosage: 220 MG, BID, ORAL
     Route: 048
     Dates: start: 20050810, end: 20050907
  2. ASPIRIN [Concomitant]

REACTIONS (2)
  - FAECES HARD [None]
  - HAEMATOCHEZIA [None]
